FAERS Safety Report 15725540 (Version 1)
Quarter: 2018Q4

REPORT INFORMATION
  Report Type: Report from Study
  Country: CN (occurrence: CN)
  Receive Date: 20181215
  Receipt Date: 20181215
  Transmission Date: 20190205
  Serious: Yes (Other)
  Sender: FDA-Public Use
  Company Number: CN-ROCHE-2227336

PATIENT

DRUGS (6)
  1. BEVACIZUMAB. [Suspect]
     Active Substance: BEVACIZUMAB
     Indication: MALIGNANT PLEURAL EFFUSION
     Route: 065
  2. CISPLATIN. [Suspect]
     Active Substance: CISPLATIN
     Indication: ASCITES
  3. LIDOCAINE. [Concomitant]
     Active Substance: LIDOCAINE
  4. DEXAMETHASONE. [Concomitant]
     Active Substance: DEXAMETHASONE
  5. BEVACIZUMAB. [Suspect]
     Active Substance: BEVACIZUMAB
     Indication: ASCITES
  6. CISPLATIN. [Suspect]
     Active Substance: CISPLATIN
     Indication: MALIGNANT PLEURAL EFFUSION
     Route: 065

REACTIONS (5)
  - Nausea [Unknown]
  - Vomiting [Unknown]
  - Blood pressure increased [Unknown]
  - Diarrhoea [Unknown]
  - Bone marrow failure [Unknown]
